FAERS Safety Report 20016595 (Version 1)
Quarter: 2021Q4

REPORT INFORMATION
  Report Type: Spontaneous
  Country: US (occurrence: None)
  Receive Date: 20211104
  Receipt Date: 20211104
  Transmission Date: 20220303
  Serious: No
  Sender: FDA-Public Use
  Company Number: None

PATIENT
  Age: 35 Year
  Sex: Female
  Weight: 92.25 kg

DRUGS (1)
  1. IVERMECTIN [Suspect]
     Active Substance: IVERMECTIN
     Indication: Rosacea
     Route: 061
     Dates: start: 20210912

REACTIONS (3)
  - Burning sensation [None]
  - Product substitution issue [None]
  - Insurance issue [None]

NARRATIVE: CASE EVENT DATE: 20210912
